FAERS Safety Report 26058248 (Version 1)
Quarter: 2025Q4

REPORT INFORMATION
  Report Type: Spontaneous
  Country: US (occurrence: US)
  Receive Date: 20251118
  Receipt Date: 20251118
  Transmission Date: 20260118
  Serious: No
  Sender: BRISTOL-MYERS SQUIBB COMPANY
  Company Number: US-BRISTOL-MYERS SQUIBB COMPANY-2025-155723

PATIENT
  Sex: Male

DRUGS (2)
  1. SOTYKTU [Suspect]
     Active Substance: DEUCRAVACITINIB
     Indication: Product used for unknown indication
  2. EBGLYSS [Concomitant]
     Active Substance: LEBRIKIZUMAB-LBKZ
     Indication: Product used for unknown indication

REACTIONS (2)
  - Visual impairment [Unknown]
  - Hypoaesthesia [Unknown]
